FAERS Safety Report 18571136 (Version 1)
Quarter: 2020Q4

REPORT INFORMATION
  Report Type: Spontaneous
  Country: US (occurrence: US)
  Receive Date: 20201202
  Receipt Date: 20201202
  Transmission Date: 20210114
  Serious: Yes (Hospitalization, Other)
  Sender: FDA-Public Use
  Company Number: US-PURDUE-USA-2020-0169871

PATIENT
  Sex: Female

DRUGS (3)
  1. MS CONTIN [Suspect]
     Active Substance: MORPHINE SULFATE
     Indication: PAIN
     Dosage: UNK
     Route: 048
  2. OXYCODONE HYDROCHLORIDE (SIMILAR TO NDA 22-272) [Suspect]
     Active Substance: OXYCODONE HYDROCHLORIDE
     Indication: PAIN
     Dosage: 30 MG, UNK
     Route: 048
  3. MORPHINE SULFATE EXTENDED-RELEASE TABLETS (RHODES 74-769, 74-862) [Suspect]
     Active Substance: MORPHINE SULFATE
     Indication: PAIN
     Dosage: 100 MG, UNK
     Route: 048

REACTIONS (11)
  - Peripheral swelling [Unknown]
  - Hypokalaemia [Unknown]
  - Heart rate increased [Unknown]
  - Multiple fractures [Unknown]
  - Gastrointestinal disorder [Unknown]
  - Drug dependence [Unknown]
  - Pancreatitis [Unknown]
  - Migraine [Unknown]
  - Insomnia [Unknown]
  - Gait disturbance [Unknown]
  - Oedema peripheral [Unknown]
